FAERS Safety Report 14214402 (Version 1)
Quarter: 2017Q4

REPORT INFORMATION
  Report Type: Report from Study
  Country: US (occurrence: US)
  Receive Date: 20171122
  Receipt Date: 20171122
  Transmission Date: 20180321
  Serious: Yes (Hospitalization)
  Sender: FDA-Public Use
  Company Number: US-B.I. PHARMACEUTICALS,INC./RIDGEFIELD-2017-BI-000811

PATIENT
  Sex: Male

DRUGS (1)
  1. OFEV [Suspect]
     Active Substance: NINTEDANIB
     Indication: IDIOPATHIC PULMONARY FIBROSIS
     Route: 048
     Dates: start: 20161115

REACTIONS (7)
  - Internal haemorrhage [Unknown]
  - Productive cough [Unknown]
  - Headache [Unknown]
  - Hiatus hernia [Unknown]
  - Cough [Unknown]
  - Diarrhoea [Unknown]
  - Dyspnoea [Unknown]
